FAERS Safety Report 15517744 (Version 1)
Quarter: 2018Q4

REPORT INFORMATION
  Report Type: Spontaneous
  Country: US (occurrence: US)
  Receive Date: 20181017
  Receipt Date: 20181017
  Transmission Date: 20190205
  Serious: No
  Sender: FDA-Public Use
  Company Number: US-PFIZER INC-2018417756

PATIENT
  Sex: Male

DRUGS (4)
  1. NEURONTIN [Suspect]
     Active Substance: GABAPENTIN
     Indication: RESTLESS LEGS SYNDROME
     Dosage: 100 MG, DAILY
  2. VICODIN [Concomitant]
     Active Substance: ACETAMINOPHEN\HYDROCODONE BITARTRATE
     Dosage: UNK
  3. NEURONTIN [Suspect]
     Active Substance: GABAPENTIN
     Dosage: 200 MG, DAILY
  4. NEURONTIN [Suspect]
     Active Substance: GABAPENTIN
     Dosage: 400 MG, DAILY (TWO SEPARATE DOSES, ONE DOSE AT LUNCH AND ONE DOSE AT BEDTIME)

REACTIONS (6)
  - Coordination abnormal [Unknown]
  - Product use in unapproved indication [Unknown]
  - Paranasal sinus discomfort [Unknown]
  - Product dose omission [Unknown]
  - Drug hypersensitivity [Unknown]
  - Dizziness [Unknown]

NARRATIVE: CASE EVENT DATE: 20181003
